FAERS Safety Report 21619096 (Version 2)
Quarter: 2022Q4

REPORT INFORMATION
  Report Type: Spontaneous
  Country: US (occurrence: US)
  Receive Date: 20221120
  Receipt Date: 20221123
  Transmission Date: 20230113
  Serious: Yes (Hospitalization, Other)
  Sender: FDA-Public Use
  Company Number: US-SA-SAC20221116001703

PATIENT
  Age: 39 Year
  Sex: Female

DRUGS (1)
  1. KEVZARA [Suspect]
     Active Substance: SARILUMAB
     Dosage: 200 MG, UNK
     Route: 058

REACTIONS (4)
  - Cardiac failure [Recovered/Resolved]
  - Peripheral swelling [Recovered/Resolved]
  - Fluid retention [Recovered/Resolved]
  - Migraine [Unknown]
